FAERS Safety Report 6591478-6 (Version None)
Quarter: 2010Q1

REPORT INFORMATION
  Report Type: 
  Country: None (occurrence: None)
  Receive Date: 20100219
  Receipt Date: 20100210
  Transmission Date: 20100710
  Serious: Yes (Other)
  Sender: FDA-Public Use
  Company Number: CH-GENENTECH-298123

PATIENT
  Sex: Female

DRUGS (5)
  1. MABTHERA [Suspect]
     Indication: HODGKIN'S DISEASE
     Dosage: UNK
     Route: 065
     Dates: start: 20091201
  2. BLEOMYCIN [Suspect]
     Indication: HODGKIN'S DISEASE
     Dosage: UNK
     Route: 065
  3. ADRIAMYCIN PFS [Concomitant]
     Indication: HODGKIN'S DISEASE
     Dosage: UNK
  4. VINBLASTINE SULFATE [Concomitant]
     Indication: HODGKIN'S DISEASE
     Dosage: UNK
  5. DACARBAZINE [Concomitant]
     Indication: HODGKIN'S DISEASE
     Dosage: UNK

REACTIONS (1)
  - LUNG DISORDER [None]
